FAERS Safety Report 9518668 (Version 1)
Quarter: 2013Q3

REPORT INFORMATION
  Report Type: Report from Study
  Country: NL (occurrence: NL)
  Receive Date: 20130912
  Receipt Date: 20130912
  Transmission Date: 20140515
  Serious: Yes (Hospitalization)
  Sender: FDA-Public Use
  Company Number: PHHO2013NL011733

PATIENT
  Age: 60 Year
  Sex: Male

DRUGS (7)
  1. AMN107 [Suspect]
     Indication: CHRONIC GRAFT VERSUS HOST DISEASE
     Dosage: 300 MG, BID
     Route: 048
  2. MABTHERA [Suspect]
     Indication: CHRONIC GRAFT VERSUS HOST DISEASE
     Dosage: UNK
  3. PREDNISONE [Concomitant]
     Indication: CHRONIC GRAFT VERSUS HOST DISEASE
     Dosage: 20 MG, QD
     Route: 048
  4. COTRIMOXAZOL [Concomitant]
     Indication: INFECTION PROPHYLAXIS
     Dosage: 480 MG, QD
     Route: 048
  5. OXYCONTIN [Concomitant]
     Indication: PAIN
     Dosage: 10 MG, BID
     Route: 048
  6. AMLODIPINE [Concomitant]
     Indication: HYPERTENSION
     Dosage: 5 MG, QD
     Route: 048
  7. PANTOPRAZOL [Concomitant]
     Indication: PROPHYLAXIS
     Dosage: 40 MG, QD
     Route: 048

REACTIONS (2)
  - Pneumonia [Unknown]
  - Cytomegalovirus infection [Unknown]
